FAERS Safety Report 8889264 (Version 1)
Quarter: 2012Q4

REPORT INFORMATION
  Report Type: 
  Country: BR (occurrence: BR)
  Receive Date: 20121106
  Receipt Date: 20121106
  Transmission Date: 20130627
  Serious: Yes (Death, Other)
  Sender: FDA-Public Use
  Company Number: BR-ROCHE-106970

PATIENT
  Sex: Male

DRUGS (3)
  1. LARIAM [Suspect]
     Indication: MALARIA PROPHYLAXIS
     Route: 048
  2. ROACUTAN [Suspect]
     Indication: ACNE
     Route: 065
  3. BENZOYL PEROXIDE [Concomitant]

REACTIONS (6)
  - Completed suicide [Fatal]
  - Depression [Not Recovered/Not Resolved]
  - Mania [Unknown]
  - Ingrowing nail [Not Recovered/Not Resolved]
  - Cyst [Not Recovered/Not Resolved]
  - Penis disorder [Unknown]
